FAERS Safety Report 13472001 (Version 2)
Quarter: 2017Q2

REPORT INFORMATION
  Report Type: Spontaneous
  Country: US (occurrence: US)
  Receive Date: 20170424
  Receipt Date: 20170516
  Transmission Date: 20170830
  Serious: Yes (Death)
  Sender: FDA-Public Use
  Company Number: US-TAIHO ONCOLOGY INC-EU-2017-00640

PATIENT
  Age: 66 Year
  Sex: Female

DRUGS (10)
  1. IMODIUM [Concomitant]
     Active Substance: LOPERAMIDE HYDROCHLORIDE
     Dosage: NI
  2. LOMOTIL [Concomitant]
     Active Substance: ATROPINE SULFATE\DIPHENOXYLATE HYDROCHLORIDE
     Dosage: NI
  3. LONSURF [Suspect]
     Active Substance: TIPIRACIL HYDROCHLORIDE\TRIFLURIDINE
     Indication: COLON CANCER METASTATIC
     Route: 048
     Dates: start: 20161103
  4. FENTANYL. [Concomitant]
     Active Substance: FENTANYL
     Dosage: NI
  5. METOPROLOL. [Concomitant]
     Active Substance: METOPROLOL
     Dosage: NI
  6. URSODEOXYCHOLIC ACID [Concomitant]
     Active Substance: URSODIOL
     Dosage: NI
  7. NORCO [Concomitant]
     Active Substance: ACETAMINOPHEN\HYDROCODONE BITARTRATE
     Dosage: NI
  8. HYDROMORPHONE [Concomitant]
     Active Substance: HYDROMORPHONE
     Dosage: NI
  9. ONDANSETRON [Concomitant]
     Active Substance: ONDANSETRON
     Dosage: NI
  10. RIFAXIMIN [Concomitant]
     Active Substance: RIFAXIMIN
     Dosage: NI

REACTIONS (1)
  - Disease progression [Fatal]

NARRATIVE: CASE EVENT DATE: 20170410
